FAERS Safety Report 11870066 (Version 1)
Quarter: 2015Q4

REPORT INFORMATION
  Report Type: Report from Study
  Country: JP (occurrence: JP)
  Receive Date: 20151228
  Receipt Date: 20151228
  Transmission Date: 20160305
  Serious: Yes (Other)
  Sender: FDA-Public Use
  Company Number: JP-ALXN-A201505190AA

PATIENT
  Age: 52 Year
  Sex: Female

DRUGS (8)
  1. NEORAL [Concomitant]
     Active Substance: CYCLOSPORINE
     Dosage: 80 UNK, DAILY
     Route: 065
     Dates: end: 20141209
  2. BAKTAR [Concomitant]
     Active Substance: SULFAMETHOXAZOLE\TRIMETHOPRIM
     Indication: PRODUCT USED FOR UNKNOWN INDICATION
     Dosage: 1 TAB, DAILY
     Route: 048
     Dates: start: 20111012, end: 20141112
  3. ALFAROL [Concomitant]
     Active Substance: ALFACALCIDOL
     Indication: PRODUCT USED FOR UNKNOWN INDICATION
     Dosage: 1.0 ?G, DAILY
     Route: 065
     Dates: start: 20040525
  4. BONZOL                             /00428701/ [Concomitant]
     Indication: PRODUCT USED FOR UNKNOWN INDICATION
     Dosage: 400 MG, DAILY
     Route: 065
     Dates: start: 20100901
  5. SOLIRIS [Suspect]
     Active Substance: ECULIZUMAB
     Dosage: 900 MG, Q2W
     Route: 042
     Dates: start: 20140402, end: 20150318
  6. NEORAL [Concomitant]
     Active Substance: CYCLOSPORINE
     Dosage: 120 UNK, DAILY
     Route: 065
     Dates: start: 20110216
  7. NEORAL [Concomitant]
     Active Substance: CYCLOSPORINE
     Indication: PAROXYSMAL NOCTURNAL HAEMOGLOBINURIA
     Dosage: 200 MG, DAILY
     Route: 065
     Dates: start: 20040819, end: 20110215
  8. SOLIRIS [Suspect]
     Active Substance: ECULIZUMAB
     Indication: PAROXYSMAL NOCTURNAL HAEMOGLOBINURIA
     Dosage: 900 MG, Q2W
     Route: 042
     Dates: start: 20100804, end: 20110216

REACTIONS (1)
  - Myelodysplastic syndrome [Unknown]

NARRATIVE: CASE EVENT DATE: 20120808
